FAERS Safety Report 7595778-2 (Version None)
Quarter: 2011Q3

REPORT INFORMATION
  Report Type: 
  Country: None (occurrence: None)
  Receive Date: 20110707
  Receipt Date: 20110707
  Transmission Date: 20111222
  Serious: Yes (Hospitalization, Other)
  Sender: FDA-Public Use
  Company Number: JP-PFIZER INC-2011145557

PATIENT
  Age: 57 Year
  Sex: Female

DRUGS (7)
  1. SELBEX [Concomitant]
     Dosage: 50 MG, 3X/DAY
     Route: 048
     Dates: start: 20030101
  2. GASMOTIN [Concomitant]
     Dosage: 2.5 MG, 3X/DAY
     Route: 048
     Dates: start: 20100101
  3. NORVASC [Suspect]
     Indication: HYPERTENSION
     Dosage: 2.5 MG, 1X/DAY
     Route: 048
     Dates: start: 20110401
  4. LAXOBERON [Concomitant]
     Dosage: 10 DROPS
     Route: 048
  5. LANSOPRAZOLE [Concomitant]
     Dosage: 15 MG, 1X/DAY
     Route: 048
     Dates: start: 20030101
  6. DOGMATYL [Concomitant]
     Dosage: 50 MG, 2X/DAY
     Route: 048
     Dates: start: 20070101
  7. GRANDAXIN [Concomitant]
     Dosage: 50 MG, 2X/DAY
     Route: 048
     Dates: start: 20070101

REACTIONS (3)
  - HEPATIC MASS [None]
  - CHOLELITHIASIS [None]
  - LIVER DISORDER [None]
